FAERS Safety Report 4293022-5 (Version None)
Quarter: 2004Q1

REPORT INFORMATION
  Report Type: 
  Country: None (occurrence: None)
  Receive Date: 20040210
  Receipt Date: 20040122
  Transmission Date: 20041129
  Serious: No
  Sender: FDA-Public Use
  Company Number: 7326

PATIENT
  Age: 36 Year
  Sex: Male

DRUGS (6)
  1. METHOTREXATE [Suspect]
     Indication: ACUTE MYELOID LEUKAEMIA
     Dosage: 30 MG ONCE/136 MG TOTAL, IT
     Route: 037
  2. METHOTREXATE [Suspect]
     Indication: PROPHYLACTIC CHEMOTHERAPY
     Dosage: 30 MG ONCE/136 MG TOTAL, IT
     Route: 037
  3. CYTARABINE [Suspect]
     Indication: MENINGEAL LEUKAEMIA
     Dosage: SEE IMAGE
  4. PREDNISOLONE ACETATE [Concomitant]
  5. IDARUBICIN HCL [Concomitant]
  6. MITOXANTRONE [Concomitant]

REACTIONS (5)
  - COMA [None]
  - CSF TEST ABNORMAL [None]
  - DISORIENTATION [None]
  - HEPATIC ENZYME INCREASED [None]
  - LEUKOENCEPHALOPATHY [None]
